FAERS Safety Report 8073244-8 (Version None)
Quarter: 2012Q1

REPORT INFORMATION
  Report Type: 
  Country: None (occurrence: None)
  Receive Date: 20120126
  Receipt Date: 20120123
  Transmission Date: 20120608
  Serious: Yes (Other)
  Sender: FDA-Public Use
  Company Number: PHHY2012BR006001

PATIENT
  Sex: Female
  Weight: 38 kg

DRUGS (1)
  1. EXELON [Suspect]
     Dosage: 9.5 MG/24 HOURS
     Route: 062

REACTIONS (4)
  - APPLICATION SITE PRURITUS [None]
  - PHOTOSENSITIVITY REACTION [None]
  - DEMENTIA ALZHEIMER'S TYPE [None]
  - APPLICATION SITE ERYTHEMA [None]
